FAERS Safety Report 6291666-2 (Version None)
Quarter: 2009Q3

REPORT INFORMATION
  Report Type: 
  Country: None (occurrence: None)
  Receive Date: 20090730
  Receipt Date: 20090730
  Transmission Date: 20100115
  Serious: Yes (Other)
  Sender: FDA-Public Use
  Company Number: None

PATIENT
  Age: 38 Year
  Sex: Female

DRUGS (1)
  1. FOSRENOL [Suspect]
     Indication: RENAL FAILURE
     Dosage: 1 TABL AFTER EACH MEAL PO
     Route: 048
     Dates: start: 20050401, end: 20051001

REACTIONS (2)
  - HISTOLOGY ABNORMAL [None]
  - NEPHROGENIC SYSTEMIC FIBROSIS [None]
